FAERS Safety Report 6802896-2 (Version None)
Quarter: 2010Q2

REPORT INFORMATION
  Report Type: 
  Country: None (occurrence: None)
  Receive Date: 20100628
  Receipt Date: 20100618
  Transmission Date: 20101027
  Serious: Yes (Hospitalization)
  Sender: FDA-Public Use
  Company Number: AT-ASTRAZENECA-2010SE28573

PATIENT

DRUGS (1)
  1. ZOMIG [Suspect]
     Indication: CLUSTER HEADACHE
     Route: 045

REACTIONS (1)
  - PANCREATITIS [None]
